FAERS Safety Report 11612450 (Version 3)
Quarter: 2018Q3

REPORT INFORMATION
  Report Type: Spontaneous
  Country: US (occurrence: US)
  Receive Date: 20151008
  Receipt Date: 20180813
  Transmission Date: 20181010
  Serious: Yes (Hospitalization)
  Sender: FDA-Public Use
  Company Number: US-JNJFOC-20150916561

PATIENT
  Age: 71 Year
  Sex: Male
  Weight: 81.65 kg

DRUGS (3)
  1. XARELTO [Suspect]
     Active Substance: RIVAROXABAN
     Indication: THROMBOSIS PROPHYLAXIS
     Route: 048
     Dates: start: 20150720, end: 20150721
  2. ASPIRIN. [Suspect]
     Active Substance: ASPIRIN
     Indication: PRODUCT USED FOR UNKNOWN INDICATION
     Route: 048
  3. XARELTO [Suspect]
     Active Substance: RIVAROXABAN
     Indication: THROMBOSIS PROPHYLAXIS
     Route: 048
     Dates: start: 20150720, end: 20150721

REACTIONS (5)
  - Scar [Not Recovered/Not Resolved]
  - Haematoma [Recovering/Resolving]
  - Hypoaesthesia [Not Recovered/Not Resolved]
  - Ecchymosis [Recovering/Resolving]
  - Haemorrhagic diathesis [Recovering/Resolving]

NARRATIVE: CASE EVENT DATE: 2015
